FAERS Safety Report 19920285 (Version 2)
Quarter: 2021Q4

REPORT INFORMATION
  Report Type: Spontaneous
  Country: FR (occurrence: FR)
  Receive Date: 20211005
  Receipt Date: 20211112
  Transmission Date: 20220303
  Serious: Yes (Hospitalization, Other)
  Sender: FDA-Public Use
  Company Number: FR-ACCORD-226976

PATIENT
  Age: 55 Year
  Sex: Male
  Weight: 93 kg

DRUGS (33)
  1. OXALIPLATIN [Suspect]
     Active Substance: OXALIPLATIN
     Indication: Diffuse large B-cell lymphoma
     Dosage: 100 MILLIGRAM/SQ. METER, Q2W (1Q2W, REGIMEN-01)
     Route: 042
     Dates: start: 20210426
  2. OXALIPLATIN [Suspect]
     Active Substance: OXALIPLATIN
     Dosage: 100 MILLIGRAM/SQ. METER, QD
     Dates: start: 20210510, end: 20210510
  3. GEMCITABINE [Suspect]
     Active Substance: GEMCITABINE
     Indication: Diffuse large B-cell lymphoma
     Dosage: 1000 MILLIGRAM/SQ. METER, Q2W (1Q2W, REGIMEN-01)
     Route: 042
     Dates: start: 20210426
  4. DOLIPRANE [Concomitant]
     Active Substance: ACETAMINOPHEN
     Dosage: UNK
     Dates: start: 20210510, end: 20210510
  5. DOLIPRANE [Concomitant]
     Active Substance: ACETAMINOPHEN
     Dosage: UNK
     Dates: start: 20210426, end: 20210525
  6. DOLIPRANE [Concomitant]
     Active Substance: ACETAMINOPHEN
     Dosage: UNK
     Dates: start: 20210512
  7. BACTRIM [Concomitant]
     Active Substance: SULFAMETHOXAZOLE\TRIMETHOPRIM
     Dosage: UNK
     Dates: start: 2019, end: 20210420
  8. METHYLPREDNISOLONE [Concomitant]
     Active Substance: METHYLPREDNISOLONE
     Dosage: UNK
     Dates: start: 20210510, end: 20210510
  9. POLARAMINE [Concomitant]
     Active Substance: DEXCHLORPHENIRAMINE MALEATE
     Dosage: UNK
     Dates: start: 20210510, end: 20210510
  10. POLARAMINE [Concomitant]
     Active Substance: DEXCHLORPHENIRAMINE MALEATE
     Dosage: 1000 MILLIGRAM
     Route: 048
     Dates: start: 20210426, end: 20210525
  11. TADALAFIL [Concomitant]
     Active Substance: TADALAFIL
     Dosage: UNK
     Dates: start: 20210208
  12. INSULIN NOS [Concomitant]
     Active Substance: INSULIN NOS
     Dosage: UNK
     Dates: start: 20210517, end: 20210518
  13. SOLUPRED                           /00016201/ [Concomitant]
     Dosage: 100 MILLIGRAM
     Dates: end: 20210506
  14. SOLUPRED                           /00016201/ [Concomitant]
     Dosage: 100 UNK
     Route: 048
     Dates: start: 20210510, end: 20210514
  15. SOLUPRED                           /00016201/ [Concomitant]
     Dosage: 100 UNK
     Route: 048
     Dates: start: 20210426, end: 20210527
  16. SOLUPRED                           /00016201/ [Concomitant]
     Dosage: 100 UNK
     Route: 048
     Dates: start: 20210525, end: 20210527
  17. LYRICA [Concomitant]
     Active Substance: PREGABALIN
     Dosage: UNK
     Dates: start: 2019
  18. ERTAPENEM [Concomitant]
     Active Substance: ERTAPENEM
     Dosage: ONGOING
     Dates: start: 20210526
  19. CHOLECALCIFEROL [Concomitant]
     Active Substance: CHOLECALCIFEROL
     Dosage: UNK
     Dates: start: 2019
  20. NOVORAPID [Concomitant]
     Active Substance: INSULIN ASPART
     Dosage: UNK
     Dates: start: 2019
  21. LEVOFLOXACIN [Concomitant]
     Active Substance: LEVOFLOXACIN
     Dosage: UNK
     Dates: start: 20210510, end: 20210510
  22. TOVIAZ [Concomitant]
     Active Substance: FESOTERODINE FUMARATE
     Dosage: UNK
     Dates: start: 20210208
  23. EUPANTOL [Concomitant]
     Active Substance: PANTOPRAZOLE SODIUM
     Dosage: UNK
     Dates: start: 20210510
  24. ALLOPURINOL [Concomitant]
     Active Substance: ALLOPURINOL
     Dosage: UNK
     Dates: start: 20210510
  25. CASPOFUNGIN [Concomitant]
     Active Substance: CASPOFUNGIN
     Dosage: UNK
     Dates: start: 20210518, end: 20210526
  26. AUGMENTIN                          /00756801/ [Concomitant]
     Dosage: UNK
     Dates: start: 20210510, end: 20210510
  27. POLARAMINE [Concomitant]
     Active Substance: DEXCHLORPHENIRAMINE MALEATE
     Dosage: 5 MILLIGRAM
     Route: 042
     Dates: start: 20210503
  28. POLARAMINE [Concomitant]
     Active Substance: DEXCHLORPHENIRAMINE MALEATE
     Dosage: 1000 UNK
     Route: 042
     Dates: start: 20210510, end: 20210510
  29. LERCANIDIPINE [Concomitant]
     Active Substance: LERCANIDIPINE
     Dosage: UNK
     Dates: start: 2019
  30. IRBESARTAN AND HYDROCHLOROTHIAZIDE [Concomitant]
     Active Substance: HYDROCHLOROTHIAZIDE\IRBESARTAN
     Dosage: UNK
     Dates: start: 2019
  31. INSULIN GLARGINE [Concomitant]
     Active Substance: INSULIN GLARGINE
     Dosage: UNK
     Dates: start: 2019
  32. POLYETHYLENE GLYCOLS [Concomitant]
     Active Substance: POLYETHYLENE GLYCOLS
     Dosage: UNK
     Dates: start: 20210527
  33. VALACYCLOVIR HYDROCHLORIDE [Concomitant]
     Active Substance: VALACYCLOVIR HYDROCHLORIDE
     Dosage: UNK
     Dates: start: 2019

REACTIONS (3)
  - Cytokine release syndrome [Not Recovered/Not Resolved]
  - Sepsis [Recovered/Resolved]
  - Off label use [Unknown]

NARRATIVE: CASE EVENT DATE: 20210511
